FAERS Safety Report 16795042 (Version 1)
Quarter: 2019Q4

REPORT INFORMATION
  Report Type: Spontaneous
  Country: US (occurrence: US)
  Receive Date: 20190910
  Receipt Date: 20190910
  Transmission Date: 20200122
  Serious: Yes (Hospitalization)
  Sender: FDA-Public Use
  Company Number: None

PATIENT
  Age: 69 Year
  Sex: Male
  Weight: 108.7 kg

DRUGS (1)
  1. RITUXIMAB. [Suspect]
     Active Substance: RITUXIMAB

REACTIONS (4)
  - Back pain [None]
  - Chills [None]
  - Rash pruritic [None]
  - Pyrexia [None]

NARRATIVE: CASE EVENT DATE: 20190822
